FAERS Safety Report 6451253-X (Version None)
Quarter: 2009Q4

REPORT INFORMATION
  Report Type: 
  Country: None (occurrence: None)
  Receive Date: 20091123
  Receipt Date: 20091111
  Transmission Date: 20100525
  Serious: Yes (Other)
  Sender: FDA-Public Use
  Company Number: TR-ELI_LILLY_AND_COMPANY-TR200911002773

PATIENT

DRUGS (5)
  1. HUMALOG [Suspect]
     Dosage: 2 U, 3/D
     Route: 064
     Dates: start: 20090601, end: 20090818
  2. HUMULIN N [Suspect]
     Dosage: 2 U, DAILY (1/D)
     Route: 064
     Dates: start: 20090601, end: 20090818
  3. VENTOLIN [Concomitant]
     Dosage: UNK, UNKNOWN
     Route: 064
  4. FOLIC ACID [Concomitant]
     Dosage: UNK, UNKNOWN
     Route: 064
     Dates: start: 20090301
  5. IRON [Concomitant]
     Dosage: UNK, UNKNOWN
     Route: 064
     Dates: start: 20090301

REACTIONS (2)
  - DRUG EXPOSURE DURING PREGNANCY [None]
  - LUNG DISORDER [None]
